FAERS Safety Report 4987513-9 (Version None)
Quarter: 2006Q2

REPORT INFORMATION
  Report Type: 
  Country: None (occurrence: None)
  Receive Date: 20060424
  Receipt Date: 20060413
  Transmission Date: 20061013
  Serious: Yes (Hospitalization)
  Sender: FDA-Public Use
  Company Number: 224108

PATIENT
  Age: 56 Year
  Sex: Female

DRUGS (7)
  1. AVASTIN [Suspect]
     Indication: LUNG NEOPLASM MALIGNANT
     Dosage: 1415 MG , INTRAVENOUS
     Route: 042
     Dates: start: 20060316
  2. ALIMTA [Suspect]
     Indication: LUNG NEOPLASM MALIGNANT
     Dosage: 1050 MG, INTRAVENOUS
     Route: 042
     Dates: start: 20060316
  3. CARBOPLATIN [Suspect]
     Indication: LUNG NEOPLASM MALIGNANT
     Dosage: 500 MG INTRAVENOUS
     Route: 042
  4. DARVOCET (ACETAMINOPHEN, PROPOXYPHENE NAPSYLATE) [Concomitant]
  5. ZELNORM [Concomitant]
  6. NEXIUM [Concomitant]
  7. KLONOPIN [Concomitant]

REACTIONS (8)
  - ANAEMIA [None]
  - BLOOD CREATININE INCREASED [None]
  - BLOOD GLUCOSE INCREASED [None]
  - EATING DISORDER [None]
  - FATIGUE [None]
  - LACTOBACILLUS INFECTION [None]
  - MUSCULOSKELETAL CHEST PAIN [None]
  - PYREXIA [None]
